FAERS Safety Report 5299024-4 (Version None)
Quarter: 2007Q2

REPORT INFORMATION
  Report Type: 
  Country: None (occurrence: None)
  Receive Date: 20070402
  Receipt Date: 20070315
  Transmission Date: 20071010
  Serious: Yes (Death, Life-Threatening, Hospitalization, Disabling)
  Sender: FDA-Public Use
  Company Number: WSDF_00597

PATIENT
  Age: 81 Year
  Sex: Female
  Weight: 56.6996 kg

DRUGS (1)
  1. WINRHO SDF [Suspect]
     Indication: IDIOPATHIC THROMBOCYTOPENIC PURPURA
     Dosage: 4000 MCG ONCE IV
     Route: 042
     Dates: start: 20061108, end: 20061108

REACTIONS (26)
  - ASTHENIA [None]
  - CARDIAC FAILURE [None]
  - CARDIO-RESPIRATORY ARREST [None]
  - CEREBELLAR ATROPHY [None]
  - CEREBELLAR HAEMORRHAGE [None]
  - CEREBRAL HAEMORRHAGE [None]
  - EPISTAXIS [None]
  - GALLBLADDER DISORDER [None]
  - HAEMOLYTIC ANAEMIA [None]
  - HEPATIC CYST [None]
  - IDIOPATHIC THROMBOCYTOPENIC PURPURA [None]
  - INTRAVASCULAR HAEMOLYSIS [None]
  - LICHEN SCLEROSUS [None]
  - MARROW HYPERPLASIA [None]
  - MENINGITIS [None]
  - METABOLIC ENCEPHALOPATHY [None]
  - MYOCARDIAL INFARCTION [None]
  - NERVOUS SYSTEM DISORDER [None]
  - NO THERAPEUTIC RESPONSE [None]
  - PAIN [None]
  - PAIN IN EXTREMITY [None]
  - PNEUMONIA ASPIRATION [None]
  - SINUS TACHYCARDIA [None]
  - STATUS EPILEPTICUS [None]
  - TRANSFUSION REACTION [None]
  - VAGINAL HAEMORRHAGE [None]
